FAERS Safety Report 6640390-2 (Version None)
Quarter: 2010Q1

REPORT INFORMATION
  Report Type: 
  Country: None (occurrence: None)
  Receive Date: 20100318
  Receipt Date: 20100216
  Transmission Date: 20100710
  Serious: No
  Sender: FDA-Public Use
  Company Number: US-BAYER-201014104NA

PATIENT
  Sex: Male

DRUGS (1)
  1. MAGNEVIST [Suspect]
     Dates: start: 20100209, end: 20100209

REACTIONS (3)
  - LIMB INJURY [None]
  - PRODUCT CONTAINER ISSUE [None]
  - PRODUCT DEPOSIT [None]
